FAERS Safety Report 18346884 (Version 1)
Quarter: 2020Q4

REPORT INFORMATION
  Report Type: Spontaneous
  Country: US (occurrence: US)
  Receive Date: 20201005
  Receipt Date: 20201005
  Transmission Date: 20210114
  Serious: Yes (Other)
  Sender: FDA-Public Use
  Company Number: US-SA-2020SA266935

PATIENT

DRUGS (1)
  1. LANTUS SOLOSTAR [Suspect]
     Active Substance: INSULIN GLARGINE
     Indication: TYPE 2 DIABETES MELLITUS
     Dosage: 10 IU, QD
     Route: 065

REACTIONS (8)
  - Rhinorrhoea [Unknown]
  - Feeling abnormal [Unknown]
  - Dry eye [Unknown]
  - Thrombosis [Unknown]
  - Muscle spasms [Unknown]
  - Insomnia [Unknown]
  - Confusional state [Unknown]
  - Yawning [Unknown]
